FAERS Safety Report 14676329 (Version 2)
Quarter: 2018Q3

REPORT INFORMATION
  Report Type: Spontaneous
  Country: US (occurrence: US)
  Receive Date: 20180323
  Receipt Date: 20180717
  Transmission Date: 20181010
  Serious: No
  Sender: FDA-Public Use
  Company Number: US-009507513-1803USA003413

PATIENT
  Age: 63 Year
  Sex: Male

DRUGS (6)
  1. BUMETANIDE. [Concomitant]
     Active Substance: BUMETANIDE
     Dosage: VIA PEG TUBE
     Route: 050
  2. ZEPATIER [Suspect]
     Active Substance: ELBASVIR\GRAZOPREVIR
     Indication: CHRONIC HEPATITIS C
     Dosage: 50/100 MG DAILY VIA PERCUTANEOUS ENDOSCOPIC GASTROSTOMY TUBE
     Route: 050
  3. HYDRALAZINE [Concomitant]
     Active Substance: HYDRALAZINE HYDROCHLORIDE
     Dosage: VIA PEG TUBE
     Route: 050
  4. CARVEDILOL. [Concomitant]
     Active Substance: CARVEDILOL
     Dosage: VIA PEG TUBE
     Route: 050
  5. TRAMADOL HYDROCHLORIDE. [Concomitant]
     Active Substance: TRAMADOL HYDROCHLORIDE
     Dosage: VIA PEG TUBE
     Route: 050
  6. GABAPENTIN. [Concomitant]
     Active Substance: GABAPENTIN
     Dosage: VIA PEG TUBE
     Route: 050

REACTIONS (1)
  - Off label use [Unknown]
